FAERS Safety Report 20389702 (Version 1)
Quarter: 2022Q1

REPORT INFORMATION
  Report Type: Spontaneous
  Country: None (occurrence: CA)
  Receive Date: 20220128
  Receipt Date: 20220128
  Transmission Date: 20220423
  Serious: No
  Sender: FDA-Public Use
  Company Number: CA-SERB S.A.S.-2124383

PATIENT
  Age: 21 Year
  Sex: Female

DRUGS (6)
  1. CYANOKIT [Suspect]
     Active Substance: HYDROXOCOBALAMIN
     Indication: Product used for unknown indication
     Route: 065
  2. MODAFINIL [Suspect]
     Active Substance: MODAFINIL
     Route: 065
  3. MODAFINIL [Suspect]
     Active Substance: MODAFINIL
     Route: 048
  4. IRON [Suspect]
     Active Substance: IRON
     Route: 065
  5. MODAFINIL [Concomitant]
     Active Substance: MODAFINIL
     Route: 065
  6. VITAMIN B12 / 00056201 (VITAMIN B12) [Concomitant]
     Route: 065

REACTIONS (7)
  - Vision blurred [Recovered/Resolved]
  - Somnolence [Recovered/Resolved]
  - Migraine [Recovered/Resolved]
  - Eye pain [Recovered/Resolved]
  - Eye irritation [Recovered/Resolved]
  - Dry eye [Recovered/Resolved]
  - Drug ineffective [Recovered/Resolved]
